FAERS Safety Report 11240712 (Version 8)
Quarter: 2022Q3

REPORT INFORMATION
  Report Type: Spontaneous
  Country: US (occurrence: US)
  Receive Date: 20150706
  Receipt Date: 20220901
  Transmission Date: 20221026
  Serious: Yes (Other)
  Sender: FDA-Public Use
  Company Number: US-PFIZER INC-2015218582

PATIENT
  Age: 50 Year
  Sex: Female
  Weight: 73 kg

DRUGS (31)
  1. LYRICA [Suspect]
     Active Substance: PREGABALIN
     Indication: Pain in extremity
     Dosage: 150 MG, 3X/DAY
     Route: 048
  2. LYRICA [Suspect]
     Active Substance: PREGABALIN
     Indication: Spinal pain
     Dosage: 100 MG, SIX TIMES DAILY
  3. LYRICA [Suspect]
     Active Substance: PREGABALIN
     Indication: Nerve injury
     Dosage: 150 MG, 3X/DAY
  4. LYRICA [Suspect]
     Active Substance: PREGABALIN
     Dosage: 200 MG, 2X/DAY (1 CAPSULE BY MOUTH IN THE MORNING AND 1 CAPSULE BY MOUTH IN THE EVENING)
     Route: 048
  5. DEPO-ESTRADIOL [Concomitant]
     Active Substance: ESTRADIOL CYPIONATE
     Dosage: 5 MG/ML, UNK
  6. NEURONTIN [Concomitant]
     Active Substance: GABAPENTIN
     Dosage: 800 MG, 1X/DAY
  7. DOMPERIDONE [Concomitant]
     Active Substance: DOMPERIDONE
     Dosage: 20 MG, 2X/DAY
  8. LINZESS [Concomitant]
     Active Substance: LINACLOTIDE
     Dosage: 290 MG, 1X/DAY
  9. ALBUTEIN [Concomitant]
     Active Substance: ALBUMIN HUMAN
     Dosage: UNK, AS NEEDED
  10. ALLEGRA [Concomitant]
     Active Substance: FEXOFENADINE HYDROCHLORIDE
     Dosage: UNK
  11. ARMOUR THYROID [Concomitant]
     Active Substance: THYROID, PORCINE
     Dosage: 60 MG, 1X/DAY
  12. VITAMIN B12 [Concomitant]
     Active Substance: CYANOCOBALAMIN
     Dosage: 1000 ?G, 2X/DAY (1 AM, 1 AT NOON)
  13. CHLORPROMAZINE HYDROCHLORIDE [Concomitant]
     Active Substance: CHLORPROMAZINE HYDROCHLORIDE
     Dosage: 50 MG, 1X/DAY
  14. PRASTERONE [Concomitant]
     Active Substance: PRASTERONE
     Dosage: 25 MG, 1X/DAY
  15. HYDROXYZINE HYDROCHLORIDE [Concomitant]
     Active Substance: HYDROXYZINE HYDROCHLORIDE
     Dosage: 25 MG, AS NEEDED
  16. IMITREX [Concomitant]
     Active Substance: SUMATRIPTAN SUCCINATE
     Dosage: 50 MG, AS NEEDED (EVERY 2 HRS)
  17. LORAZEPAM [Concomitant]
     Active Substance: LORAZEPAM
     Dosage: 2 MG, AS NEEDED
  18. MELATONIN [Concomitant]
     Active Substance: MELATONIN
     Dosage: 10 MG, UNK
  19. MS CONTIN [Concomitant]
     Active Substance: MORPHINE SULFATE
     Dosage: 100 MG, 3X/DAY
     Dates: start: 20150519
  20. MS CONTIN [Concomitant]
     Active Substance: MORPHINE SULFATE
     Dosage: 100 MG, UNK (1-2 Q D.8 HOURS)(EXCEED 4 TABS/ DAY FOR 30 DAYS)
  21. MUCINEX [Concomitant]
     Active Substance: GUAIFENESIN
     Dosage: UNK
  22. OXYCODONE HYDROCHLORIDE [Concomitant]
     Active Substance: OXYCODONE HYDROCHLORIDE
     Indication: Constipation
     Dosage: 30 MG, 4X/DAY (PRN)
  23. PANTOPRAZOLE SODIUM [Concomitant]
     Active Substance: PANTOPRAZOLE SODIUM
     Dosage: 40 MG, 2X/DAY
  24. PHENERGAN [Concomitant]
     Active Substance: PROMETHAZINE HYDROCHLORIDE
     Dosage: 25 MG/ML, AS NEEDED
  25. RELISTOR [Concomitant]
     Active Substance: METHYLNALTREXONE BROMIDE
     Indication: Constipation
     Dosage: UNK, AS NEEDED (12 MG/0.6ML)
  26. RELISTOR [Concomitant]
     Active Substance: METHYLNALTREXONE BROMIDE
     Dosage: 12 MG, DAILY (QD FOR 3 MONTH)
     Route: 058
     Dates: start: 20160517
  27. SPIRONOLACTONE [Concomitant]
     Active Substance: SPIRONOLACTONE
     Dosage: 100 MG, 1X/DAY
  28. ZOFRAN ODT [Concomitant]
     Active Substance: ONDANSETRON HYDROCHLORIDE
     Dosage: 8 MG, AS NEEDED
  29. ZOLPIDEM TARTRATE [Concomitant]
     Active Substance: ZOLPIDEM TARTRATE
     Dosage: 10 MG, AS NEEDED
  30. ZYPREXA [Concomitant]
     Active Substance: OLANZAPINE
     Dosage: 5 MG, AS NEEDED
  31. LIDOCAINE [Concomitant]
     Active Substance: LIDOCAINE
     Dosage: 5 %, AS NEEDED (APPLY TWICE DAILY PRN)

REACTIONS (12)
  - Lipoma [Unknown]
  - Meniscus injury [Unknown]
  - Drug ineffective [Unknown]
  - Migraine [Unknown]
  - Vomiting [Unknown]
  - Hangover [Unknown]
  - Muscular weakness [Unknown]
  - Muscle tightness [Unknown]
  - Abdominal pain [Unknown]
  - Dysphonia [Unknown]
  - Oral disorder [Unknown]
  - Thyroid disorder [Unknown]
